FAERS Safety Report 24044942 (Version 1)
Quarter: 2024Q3

REPORT INFORMATION
  Report Type: Spontaneous
  Country: US (occurrence: None)
  Receive Date: 20240702
  Receipt Date: 20240702
  Transmission Date: 20241016
  Serious: No
  Sender: Public
  Company Number: None

PATIENT
  Age: 77 Year
  Sex: Female
  Weight: 60.33 kg

DRUGS (1)
  1. BENLYSTA [Suspect]
     Active Substance: BELIMUMAB
     Indication: Systemic lupus erythematosus
     Dosage: INFUSE 605MG INTRAVENOUSLY EVERY 4 WEEKS AS DIRECTED.
     Route: 042
     Dates: start: 202204

REACTIONS (1)
  - COVID-19 [None]
